FAERS Safety Report 9408445 (Version 1)
Quarter: 2013Q3

REPORT INFORMATION
  Report Type: Spontaneous
  Country: US (occurrence: US)
  Receive Date: 20130718
  Receipt Date: 20130718
  Transmission Date: 20140515
  Serious: No
  Sender: FDA-Public Use
  Company Number: US-BAUSCH-BL-2013-003076

PATIENT
  Age: 55 Year
  Sex: Male

DRUGS (9)
  1. LOTEMAX (LOTEPREDNOL ETABONATE OPHTHALMIC GEL 0.5%) [Suspect]
     Indication: CONJUNCTIVITIS ALLERGIC
     Dosage: 1 DROP; FOUR TIMES A DAY; OPHTHALMIC
     Route: 047
     Dates: start: 20130205
  2. LOTEMAX (LOTEPREDNOL ETABONATE OPHTHALMIC GEL 0.5%) [Suspect]
     Indication: BLEPHARITIS
  3. LOTEMAX (LOTEPREDNOL ETABONATE OPHTHALMIC GEL 0.5%) [Suspect]
     Indication: OFF LABEL USE
  4. ACETYLSALICYLIC ACID [Concomitant]
  5. VALSARTAN [Concomitant]
  6. FISH OIL [Concomitant]
  7. VITAMIN B COMPLEX [Concomitant]
  8. FEXOFENADINE HYDROCHLORIDE [Concomitant]
  9. SIMVASTATIN [Concomitant]

REACTIONS (1)
  - Dermatitis contact [Unknown]
